FAERS Safety Report 4535256-8 (Version None)
Quarter: 2004Q4

REPORT INFORMATION
  Report Type: 
  Country: None (occurrence: None)
  Receive Date: 20041214
  Receipt Date: 20041008
  Transmission Date: 20050328
  Serious: No
  Sender: FDA-Public Use
  Company Number: 2004243379US

PATIENT
  Sex: Female

DRUGS (1)
  1. BEXTRA [Suspect]
     Dosage: 5 MG, QD; 10MG, QD

REACTIONS (2)
  - EAR HAEMORRHAGE [None]
  - TONGUE DISORDER [None]
